FAERS Safety Report 13481452 (Version 1)
Quarter: 2017Q2

REPORT INFORMATION
  Report Type: Report from Study
  Country: KR (occurrence: KR)
  Receive Date: 20170425
  Receipt Date: 20170425
  Transmission Date: 20170830
  Serious: Yes (Hospitalization)
  Sender: FDA-Public Use
  Company Number: KR-B.I. PHARMACEUTICALS,INC./RIDGEFIELD-2017-BI-019483

PATIENT
  Age: 75 Year
  Sex: Female
  Weight: 51 kg

DRUGS (11)
  1. LIPITOR [Concomitant]
     Active Substance: ATORVASTATIN CALCIUM
     Indication: CEREBRAL ARTERY STENOSIS
     Route: 065
     Dates: start: 20161222
  2. M-COBAL [Concomitant]
     Indication: CEREBRAL ARTERY STENOSIS
     Route: 065
     Dates: start: 20161222
  3. TRAJENTA DUO [Concomitant]
     Active Substance: LINAGLIPTIN\METFORMIN HYDROCHLORIDE
     Indication: DIABETES MELLITUS
     Route: 065
     Dates: start: 20161222
  4. LACTICARE HC [Concomitant]
     Indication: PROPHYLAXIS
     Dosage: 1%
     Route: 065
     Dates: start: 20161219
  5. MUCOSTA [Concomitant]
     Active Substance: REBAMIPIDE
     Indication: CEREBRAL ARTERY STENOSIS
     Route: 065
     Dates: start: 20161222
  6. GILOTRIF [Suspect]
     Active Substance: AFATINIB
     Indication: NON-SMALL CELL LUNG CANCER
     Route: 048
     Dates: start: 20161219, end: 20170209
  7. ETRAVIL [Concomitant]
     Active Substance: AMITRIPTYLINE HYDROCHLORIDE
     Indication: CEREBRAL ARTERY STENOSIS
     Route: 065
     Dates: start: 20161222
  8. PLAVIX [Concomitant]
     Active Substance: CLOPIDOGREL BISULFATE
     Indication: CEREBRAL ARTERY STENOSIS
     Route: 065
     Dates: start: 20161222
  9. ULTRACET [Concomitant]
     Active Substance: ACETAMINOPHEN\TRAMADOL HYDROCHLORIDE
     Indication: CEREBRAL ARTERY STENOSIS
     Route: 065
     Dates: start: 20161222
  10. GILOTRIF [Suspect]
     Active Substance: AFATINIB
     Route: 048
     Dates: start: 20170210
  11. ARESTAL [Concomitant]
     Active Substance: LOPERAMIDE OXIDE
     Indication: PROPHYLAXIS AGAINST DIARRHOEA
     Route: 065
     Dates: start: 20161219

REACTIONS (1)
  - Organising pneumonia [Recovered/Resolved]

NARRATIVE: CASE EVENT DATE: 20170403
